FAERS Safety Report 17424261 (Version 2)
Quarter: 2020Q2

REPORT INFORMATION
  Report Type: Spontaneous
  Country: PT (occurrence: PT)
  Receive Date: 20200217
  Receipt Date: 20200502
  Transmission Date: 20200713
  Serious: Yes (Other)
  Sender: FDA-Public Use
  Company Number: PT-TEVA-2020-PT-1187434

PATIENT
  Age: 64 Year
  Sex: Male

DRUGS (5)
  1. ALOPURINOL RATIOPHARM 300 MG COMPRIMIDOS [Suspect]
     Active Substance: ALLOPURINOL
     Indication: BLOOD URIC ACID INCREASED
     Dosage: 300 MG
     Route: 048
     Dates: start: 201911, end: 202001
  2. METFORMIN [Concomitant]
     Active Substance: METFORMIN HYDROCHLORIDE
     Dosage: 500 MG
     Route: 048
  3. PRAVAFENIX [Concomitant]
     Active Substance: FENOFIBRATE\PRAVASTATIN
     Dosage: 1 DOSAGE FORMS
     Route: 048
  4. ASPIRINA GR 100MG COMPRIMIDOS GASTRORRESISTENTES [Suspect]
     Active Substance: ASPIRIN
     Dosage: 100 MG
     Route: 048
     Dates: start: 20200101
  5. CANDESARTAN, HYDROCHLOROTHIAZIDE [Concomitant]
     Active Substance: CANDESARTAN CILEXETIL\HYDROCHLOROTHIAZIDE
     Dosage: 1 DOSAGE FORMS
     Route: 048

REACTIONS (5)
  - Rash papular [Unknown]
  - Pruritus [Unknown]
  - Wrong dose [Unknown]
  - Auricular swelling [Unknown]
  - Eyelid oedema [Unknown]

NARRATIVE: CASE EVENT DATE: 20200121
